FAERS Safety Report 5398907-4 (Version None)
Quarter: 2007Q3

REPORT INFORMATION
  Report Type: 
  Country: None (occurrence: None)
  Receive Date: 20070724
  Receipt Date: 20070724
  Transmission Date: 20080115
  Serious: No
  Sender: FDA-Public Use
  Company Number: None

PATIENT
  Sex: Female

DRUGS (1)
  1. NEUTROGENA AGE SHIELD SUNSCREEN [Suspect]

REACTIONS (5)
  - APPLICATION SITE DISCOLOURATION [None]
  - BURNING SENSATION [None]
  - DRUG INEFFECTIVE [None]
  - PHARMACEUTICAL PRODUCT COMPLAINT [None]
  - SKIN DEPIGMENTATION [None]
